FAERS Safety Report 11660915 (Version 2)
Quarter: 2015Q4

REPORT INFORMATION
  Report Type: Spontaneous
  Country: CN (occurrence: CN)
  Receive Date: 20151026
  Receipt Date: 20151109
  Transmission Date: 20160304
  Serious: No
  Sender: FDA-Public Use
  Company Number: CN-SA-2015SA163718

PATIENT
  Age: 55 Year
  Sex: Female

DRUGS (1)
  1. TAXOTERE [Suspect]
     Active Substance: DOCETAXEL
     Indication: BREAST CANCER
     Route: 042
     Dates: start: 20151020, end: 20151020

REACTIONS (5)
  - Skin discolouration [Recovered/Resolved]
  - Joint swelling [Recovered/Resolved]
  - White blood cell count decreased [Recovered/Resolved]
  - Skin exfoliation [Recovered/Resolved]
  - Purpura [Recovered/Resolved]

NARRATIVE: CASE EVENT DATE: 20151021
